FAERS Safety Report 5679724-4 (Version None)
Quarter: 2008Q1

REPORT INFORMATION
  Report Type: 
  Country: None (occurrence: None)
  Receive Date: 20080321
  Receipt Date: 20080307
  Transmission Date: 20080703
  Serious: Yes (Hospitalization)
  Sender: FDA-Public Use
  Company Number: 2008AL001558

PATIENT
  Age: 44 Year
  Sex: Male

DRUGS (2)
  1. GABAPENTIN [Suspect]
     Indication: BACK PAIN
     Dosage: 300 MG;QD;ORAL
     Route: 048
     Dates: start: 20080131, end: 20080304
  2. MORPHINE [Concomitant]

REACTIONS (3)
  - ALOPECIA [None]
  - HEADACHE [None]
  - SYNCOPE [None]
